FAERS Safety Report 8294025-6 (Version None)
Quarter: 2012Q2

REPORT INFORMATION
  Report Type: 
  Country: None (occurrence: None)
  Receive Date: 20120418
  Receipt Date: 20120406
  Transmission Date: 20120825
  Serious: Yes (Disabling)
  Sender: FDA-Public Use
  Company Number: US-CELGENEUS-163-21660-12021848

PATIENT
  Sex: Male

DRUGS (2)
  1. ABRAXANE [Suspect]
     Indication: BREAST CANCER
     Route: 041
  2. ABRAXANE [Suspect]
     Dosage: DECREASED DOSE BY 20%
     Route: 041

REACTIONS (2)
  - NEUROPATHY PERIPHERAL [None]
  - ATAXIA [None]
